FAERS Safety Report 20548108 (Version 1)
Quarter: 2022Q1

REPORT INFORMATION
  Report Type: Spontaneous
  Country: US (occurrence: US)
  Receive Date: 20220303
  Receipt Date: 20220303
  Transmission Date: 20220423
  Serious: No
  Sender: FDA-Public Use
  Company Number: US-ALLERGAN-2103150US

PATIENT
  Age: 74 Year
  Sex: Male

DRUGS (1)
  1. RESTASIS [Suspect]
     Active Substance: CYCLOSPORINE
     Indication: Dry eye
     Dosage: 2 GTT, BID
     Route: 047
     Dates: start: 202009

REACTIONS (4)
  - Visual acuity reduced [Not Recovered/Not Resolved]
  - Injury corneal [Not Recovered/Not Resolved]
  - Vision blurred [Not Recovered/Not Resolved]
  - Product primary packaging issue [Unknown]

NARRATIVE: CASE EVENT DATE: 20201101
